FAERS Safety Report 5693263-6 (Version None)
Quarter: 2008Q2

REPORT INFORMATION
  Report Type: 
  Country: None (occurrence: None)
  Receive Date: 20080403
  Receipt Date: 20080326
  Transmission Date: 20081010
  Serious: Yes (Hospitalization)
  Sender: FDA-Public Use
  Company Number: PHBS2008US03665

PATIENT
  Age: 75 Year
  Sex: Male

DRUGS (1)
  1. OXCARBAZEPINE [Suspect]
     Indication: CONVULSION
     Route: 065

REACTIONS (16)
  - BILIRUBINURIA [None]
  - BLOOD BILIRUBIN INCREASED [None]
  - BLOOD LACTATE DEHYDROGENASE INCREASED [None]
  - BLOOD SMEAR TEST ABNORMAL [None]
  - CHROMATURIA [None]
  - HAEMATOCRIT DECREASED [None]
  - HAEMOGLOBIN DECREASED [None]
  - HAEMOLYTIC ANAEMIA [None]
  - LETHARGY [None]
  - MEMORY IMPAIRMENT [None]
  - PALLOR [None]
  - RED BLOOD CELLS URINE [None]
  - RED CELL DISTRIBUTION WIDTH INCREASED [None]
  - RETICULOCYTE COUNT INCREASED [None]
  - URINE IRON INCREASED [None]
  - WHITE BLOOD CELL COUNT INCREASED [None]
